FAERS Safety Report 9542508 (Version 1)
Quarter: 2013Q3

REPORT INFORMATION
  Report Type: Spontaneous
  Country: CA (occurrence: CA)
  Receive Date: 20130923
  Receipt Date: 20130923
  Transmission Date: 20140515
  Serious: Yes (Life-Threatening, Other)
  Sender: FDA-Public Use
  Company Number: CA-ASTRAZENECA-2013SE70685

PATIENT
  Age: 59 Year
  Sex: Female
  Weight: 65 kg

DRUGS (5)
  1. MERREM PWS [Suspect]
     Dosage: 2 G, ONE EVERY EIGHT HOURS
     Route: 042
  2. VANCOMYCIN HYDROCHLORIDE [Suspect]
     Dosage: 750.0 MILLIGRAM, ONE EVERY 8 HOURS
     Route: 042
  3. ACETAMINOPHEN [Concomitant]
  4. LORAZEPAM [Concomitant]
  5. VENLAFAXINE XR [Concomitant]

REACTIONS (3)
  - Epistaxis [Recovered/Resolved]
  - Haematuria [Recovered/Resolved]
  - Thrombocytopenia [Recovered/Resolved]
